FAERS Safety Report 5786350-5 (Version None)
Quarter: 2008Q2

REPORT INFORMATION
  Report Type: 
  Country: None (occurrence: None)
  Receive Date: 20080624
  Receipt Date: 20070829
  Transmission Date: 20081010
  Serious: No
  Sender: FDA-Public Use
  Company Number: US-ASTRAZENECA-2007UW17051

PATIENT
  Age: 4 Year
  Sex: Female
  Weight: 15.4 kg

DRUGS (2)
  1. PULMICORT RESPULES [Suspect]
     Indication: ASTHMA
     Dosage: 0.25 MG / 2 ML
     Route: 055
  2. ALBUTEROL [Concomitant]

REACTIONS (1)
  - RETCHING [None]
